FAERS Safety Report 17546281 (Version 1)
Quarter: 2020Q1

REPORT INFORMATION
  Report Type: Spontaneous
  Country: US (occurrence: US)
  Receive Date: 20200316
  Receipt Date: 20200316
  Transmission Date: 20200409
  Serious: No
  Sender: FDA-Public Use
  Company Number: NVSC2019US089738

PATIENT
  Age: 59 Year
  Sex: Female
  Weight: 65.31 kg

DRUGS (5)
  1. FISH OIL [Concomitant]
     Active Substance: FISH OIL
     Indication: PRODUCT USED FOR UNKNOWN INDICATION
     Dosage: UNK
     Route: 065
  2. MULTIVITAMINS [VITAMINS NOS] [Concomitant]
     Active Substance: VITAMINS
     Indication: PRODUCT USED FOR UNKNOWN INDICATION
     Dosage: UNK
     Route: 065
  3. XIIDRA [Suspect]
     Active Substance: LIFITEGRAST
     Indication: DRY EYE
     Dosage: 1 DRP, BID (1 DROP, 2X/DAY:BID)
     Route: 047
     Dates: start: 20191023
  4. XIIDRA [Suspect]
     Active Substance: LIFITEGRAST
     Dosage: 1 GTT, BID (1 GTT DROPS, 2X/DAY:BID)
     Route: 047
     Dates: start: 20191024
  5. XIIDRA [Suspect]
     Active Substance: LIFITEGRAST
     Dosage: 1 GTT, BID (1 GTT DROPS, 2X/DAY:BID)
     Route: 047
     Dates: start: 20191024

REACTIONS (9)
  - Dysgeusia [Recovered/Resolved]
  - Taste disorder [Recovered/Resolved]
  - Feeling abnormal [Recovered/Resolved]
  - Toothache [Recovered/Resolved]
  - Dizziness [Recovered/Resolved]
  - Product quality issue [Unknown]
  - Drug ineffective [Recovered/Resolved]
  - Decreased appetite [Recovered/Resolved]
  - Sinusitis [Recovered/Resolved]

NARRATIVE: CASE EVENT DATE: 2019
